FAERS Safety Report 24532618 (Version 1)
Quarter: 2024Q4

REPORT INFORMATION
  Report Type: Spontaneous
  Country: FR (occurrence: FR)
  Receive Date: 20241022
  Receipt Date: 20241022
  Transmission Date: 20250114
  Serious: Yes (Hospitalization, Other)
  Sender: CELLTRION
  Company Number: FR-AMGEN-FRASP2024078447

PATIENT

DRUGS (1)
  1. ADALIMUMAB [Suspect]
     Active Substance: ADALIMUMAB
     Indication: Rheumatoid arthritis
     Dosage: UNK; DOSAGE1: UNIT=NOT AVAILABLE
     Route: 065

REACTIONS (8)
  - Rheumatoid arthritis [Unknown]
  - Unevaluable event [Unknown]
  - Caesarean section [Unknown]
  - Premature labour [Unknown]
  - Ectopic pregnancy [Unknown]
  - Abortion induced [Unknown]
  - Abortion spontaneous [Unknown]
  - Maternal exposure during pregnancy [Unknown]
